FAERS Safety Report 4390731-4 (Version None)
Quarter: 2004Q2

REPORT INFORMATION
  Report Type: 
  Country: None (occurrence: None)
  Receive Date: 20040630
  Receipt Date: 20040614
  Transmission Date: 20050107
  Serious: Yes (Death)
  Sender: FDA-Public Use
  Company Number: 187245

PATIENT
  Age: 50 Year
  Sex: Female

DRUGS (26)
  1. AVONEX [Suspect]
     Indication: MULTIPLE SCLEROSIS
     Dosage: 30 MCG QW IM
     Route: 030
     Dates: start: 19980812, end: 20030101
  2. AVONEX [Suspect]
     Indication: MULTIPLE SCLEROSIS
     Dosage: 30 MCG QW IM
     Route: 030
     Dates: start: 20030904, end: 20031120
  3. KLONOPIN [Concomitant]
  4. BACLOFEN [Concomitant]
  5. NEURONTIN [Concomitant]
  6. DANTRIUM [Concomitant]
  7. LIBRIUM ^ICN^ [Concomitant]
  8. DONNATAL [Concomitant]
  9. OXYCONTIN [Concomitant]
  10. HYDROMORPHONE HCL [Concomitant]
  11. PHENERGAN ^SPECIA^ [Concomitant]
  12. SOLU-MEDROL [Concomitant]
  13. ACIPHEX [Concomitant]
  14. SODIUM CHLORIDE 0.9% [Concomitant]
  15. HEPARIN [Concomitant]
  16. ALDACTONE [Concomitant]
  17. HYTRIN [Concomitant]
  18. CARDURA [Concomitant]
  19. SYMMETREL [Concomitant]
  20. IBUPROFEN [Concomitant]
  21. PROZAC [Concomitant]
  22. ZANAFLEX [Concomitant]
  23. TEGRETOL [Concomitant]
  24. DESYREL [Concomitant]
  25. BUSPAR [Concomitant]
  26. PYRIDIATE [Concomitant]

REACTIONS (4)
  - IMMUNE SYSTEM DISORDER [None]
  - INFECTION [None]
  - PNEUMONIA [None]
  - URINARY TRACT DISORDER [None]
